FAERS Safety Report 25282144 (Version 1)
Quarter: 2025Q2

REPORT INFORMATION
  Report Type: Spontaneous
  Country: CA (occurrence: CA)
  Receive Date: 20250508
  Receipt Date: 20250508
  Transmission Date: 20250717
  Serious: Yes (Other)
  Sender: DAIICHI
  Company Number: CA-AstraZeneca-2024A114160

PATIENT
  Age: 52 Year
  Sex: Male

DRUGS (40)
  1. TRASTUZUMAB DERUXTECAN [Suspect]
     Active Substance: TRASTUZUMAB DERUXTECAN
     Indication: Pancreatic carcinoma metastatic
     Route: 042
  2. TRASTUZUMAB DERUXTECAN [Suspect]
     Active Substance: TRASTUZUMAB DERUXTECAN
     Route: 065
  3. BEVACIZUMAB [Suspect]
     Active Substance: BEVACIZUMAB
     Indication: Pancreatic carcinoma metastatic
     Route: 065
  4. TRASTUZUMAB [Suspect]
     Active Substance: TRASTUZUMAB
     Indication: Pancreatic carcinoma metastatic
     Route: 065
  5. TRASTUZUMAB [Suspect]
     Active Substance: TRASTUZUMAB
     Route: 065
  6. OSIMERTINIB [Suspect]
     Active Substance: OSIMERTINIB
     Indication: Pancreatic carcinoma metastatic
     Route: 065
  7. CAPECITABINE [Suspect]
     Active Substance: CAPECITABINE
     Indication: Pancreatic carcinoma metastatic
     Route: 065
  8. CAPECITABINE [Suspect]
     Active Substance: CAPECITABINE
     Indication: Brain cancer metastatic
     Route: 065
  9. CAPECITABINE [Suspect]
     Active Substance: CAPECITABINE
     Route: 065
  10. CAPECITABINE [Suspect]
     Active Substance: CAPECITABINE
     Route: 065
  11. CAPECITABINE [Suspect]
     Active Substance: CAPECITABINE
  12. ALUNBRIG [Suspect]
     Active Substance: BRIGATINIB
     Indication: Pancreatic carcinoma metastatic
     Route: 065
  13. ALUNBRIG [Suspect]
     Active Substance: BRIGATINIB
     Indication: Disease progression
  14. CISPLATIN [Suspect]
     Active Substance: CISPLATIN
     Indication: Pancreatic carcinoma metastatic
     Route: 042
  15. DEMCIZUMAB [Suspect]
     Active Substance: DEMCIZUMAB
     Indication: Pancreatic carcinoma metastatic
     Route: 065
  16. DOCETAXEL [Suspect]
     Active Substance: DOCETAXEL
     Indication: Pancreatic carcinoma metastatic
     Route: 065
  17. ENTRECTINIB [Suspect]
     Active Substance: ENTRECTINIB
     Indication: Pancreatic carcinoma metastatic
     Route: 065
  18. ETHIODIZED OIL [Suspect]
     Active Substance: ETHIODIZED OIL
     Indication: Pancreatic carcinoma metastatic
     Route: 065
  19. ETHIODIZED OIL [Suspect]
     Active Substance: ETHIODIZED OIL
     Indication: Product used for unknown indication
  20. GEMCITABINE HYDROCHLORIDE [Suspect]
     Active Substance: GEMCITABINE HYDROCHLORIDE
     Indication: Pancreatic carcinoma metastatic
     Route: 065
  21. GEMCITABINE HYDROCHLORIDE [Suspect]
     Active Substance: GEMCITABINE HYDROCHLORIDE
     Route: 065
  22. GEMCITABINE HYDROCHLORIDE [Suspect]
     Active Substance: GEMCITABINE HYDROCHLORIDE
     Route: 065
  23. LORBRENA [Suspect]
     Active Substance: LORLATINIB
     Indication: Pancreatic carcinoma metastatic
     Route: 065
  24. LORBRENA [Suspect]
     Active Substance: LORLATINIB
     Indication: Pulmonary mass
     Route: 065
  25. MITOMYCIN [Suspect]
     Active Substance: MITOMYCIN
     Indication: Pancreatic carcinoma metastatic
     Route: 042
  26. OXALIPLATIN [Suspect]
     Active Substance: OXALIPLATIN
     Indication: Pancreatic carcinoma metastatic
     Route: 065
  27. OXALIPLATIN [Suspect]
     Active Substance: OXALIPLATIN
     Route: 065
  28. OXALIPLATIN [Suspect]
     Active Substance: OXALIPLATIN
     Route: 065
  29. OXALIPLATIN [Suspect]
     Active Substance: OXALIPLATIN
     Route: 065
  30. PACLITAXEL [Suspect]
     Active Substance: PACLITAXEL
     Indication: Pancreatic carcinoma metastatic
     Route: 042
  31. PACLITAXEL [Suspect]
     Active Substance: PACLITAXEL
     Indication: Product used for unknown indication
  32. PEMBROLIZUMAB [Suspect]
     Active Substance: PEMBROLIZUMAB
     Indication: Pancreatic carcinoma metastatic
     Route: 065
  33. PEMBROLIZUMAB [Suspect]
     Active Substance: PEMBROLIZUMAB
     Indication: Brain cancer metastatic
  34. PEMETREXED [Suspect]
     Active Substance: PEMETREXED
     Indication: Pancreatic carcinoma metastatic
     Route: 042
  35. PERTUZUMAB [Suspect]
     Active Substance: PERTUZUMAB
     Indication: Pancreatic carcinoma metastatic
     Route: 065
  36. AMILOMER [Suspect]
     Active Substance: AMILOMER
     Indication: Product used for unknown indication
     Route: 065
  37. PACLITAXEL [Suspect]
     Active Substance: PACLITAXEL
     Indication: Pancreatic carcinoma metastatic
     Route: 065
  38. IRINOTECAN HYDROCHLORIDE [Concomitant]
     Active Substance: IRINOTECAN HYDROCHLORIDE
     Indication: Pancreatic carcinoma metastatic
     Route: 065
  39. FLUOROURACIL SODIUM [Concomitant]
     Active Substance: FLUOROURACIL SODIUM
     Indication: Pancreatic carcinoma metastatic
     Route: 065
  40. LEUCOVORIN CALCIUM [Concomitant]
     Active Substance: LEUCOVORIN CALCIUM
     Indication: Product used for unknown indication
     Route: 065

REACTIONS (6)
  - Malignant neoplasm progression [Unknown]
  - Metastases to central nervous system [Unknown]
  - Metastases to liver [Unknown]
  - Pancytopenia [Unknown]
  - Drug ineffective [Unknown]
  - Off label use [Unknown]
